FAERS Safety Report 8087507-3 (Version None)
Quarter: 2012Q1

REPORT INFORMATION
  Report Type: 
  Country: None (occurrence: None)
  Receive Date: 20120128
  Receipt Date: 20110406
  Transmission Date: 20120608
  Serious: No
  Sender: FDA-Public Use
  Company Number: US-ABBOTT-11P-163-0717731-00

PATIENT
  Sex: Male

DRUGS (8)
  1. CLONOPIN [Concomitant]
     Indication: ANXIETY
  2. ZOLOFT [Concomitant]
     Indication: DEPRESSION
  3. AMBIEN [Concomitant]
     Indication: DRUG THERAPY
  4. HUMIRA [Suspect]
     Indication: PSORIASIS
     Dates: start: 20101225
  5. VITAMIN D [Concomitant]
     Indication: SUPPLEMENTATION THERAPY
  6. MULTI-VITAMIN [Concomitant]
     Indication: SUPPLEMENTATION THERAPY
  7. ADDERALL 5 [Concomitant]
     Indication: PRODUCT USED FOR UNKNOWN INDICATION
  8. SEROQUEL [Concomitant]
     Indication: DEPRESSION

REACTIONS (1)
  - ORAL HERPES [None]
